FAERS Safety Report 7992849 (Version 2)
Quarter: 2012Q4

REPORT INFORMATION
  Report Type: 
  Country: US (occurrence: US)
  Receive Date: 20110615
  Receipt Date: 20121102
  Transmission Date: 20130627
  Serious: Yes (Other)
  Sender: FDA-Public Use
  Company Number: US-UCBSA-026552

PATIENT
  Age: 52 Year
  Sex: Female
  Weight: 74 kg

DRUGS (10)
  1. VIMPAT [Suspect]
     Indication: EPILEPSY
     Route: 048
     Dates: start: 20100110
  2. METHOTREXATE [Suspect]
     Route: 048
     Dates: start: 20101201
  3. LAMICTAL XR [Suspect]
     Indication: EPILEPSY
     Dosage: 400 MG DAILY
     Dates: start: 20090601
  4. ADVAIR DISKUS [Concomitant]
     Indication: ASTHMA
     Dosage: 500MCG-50MCG DAILY INHALATION
     Dates: start: 20080101
  5. SINGULAIR [Concomitant]
     Indication: ASTHMA
     Dosage: 10 MG WEEKLY
     Route: 048
     Dates: start: 20080101
  6. PAXIL [Concomitant]
     Indication: DEPRESSION
     Route: 048
     Dates: start: 20090101
  7. SYNTHROID [Concomitant]
     Indication: HYPOTHYROIDISM
     Dosage: 0.088 MG DAILY
     Route: 048
     Dates: start: 20030818
  8. ALBUTEROL [Concomitant]
     Indication: ASTHMA
     Dosage: INHALER
     Dates: start: 20000101
  9. TOPIRAMATE [Concomitant]
     Indication: EPILEPSY
     Route: 048
     Dates: start: 20010101
  10. IBUPROFEN [Concomitant]
     Dosage: UNKNOWN DOSE

REACTIONS (1)
  - Stevens-Johnson syndrome [Recovering/Resolving]
